FAERS Safety Report 16718948 (Version 1)
Quarter: 2019Q3

REPORT INFORMATION
  Report Type: Spontaneous
  Country: IN (occurrence: IN)
  Receive Date: 20190820
  Receipt Date: 20190820
  Transmission Date: 20191005
  Serious: Yes (Other)
  Sender: FDA-Public Use
  Company Number: IN-LUPIN PHARMACEUTICALS INC.-2019-05176

PATIENT
  Age: 55 Year
  Sex: Female

DRUGS (1)
  1. IMATINIB. [Suspect]
     Active Substance: IMATINIB MESYLATE
     Indication: CHRONIC MYELOID LEUKAEMIA
     Dosage: 400 MILLIGRAM, QD
     Route: 065

REACTIONS (6)
  - Angular cheilitis [Unknown]
  - Drug eruption [Recovered/Resolved]
  - Conjunctival hyperaemia [Unknown]
  - Madarosis [Unknown]
  - Rash generalised [Recovered/Resolved]
  - Periorbital oedema [Unknown]
